FAERS Safety Report 23862917 (Version 1)
Quarter: 2024Q2

REPORT INFORMATION
  Report Type: Spontaneous
  Country: US (occurrence: US)
  Receive Date: 20240516
  Receipt Date: 20240516
  Transmission Date: 20240716
  Serious: Yes (Death)
  Sender: FDA-Public Use
  Company Number: US-PFIZER INC-PV202400063644

PATIENT
  Age: 83 Year
  Sex: Female

DRUGS (11)
  1. IBRANCE [Suspect]
     Active Substance: PALBOCICLIB
     Indication: Breast cancer female
     Dosage: 100 MG DAILY FOR 21 DAYS THEN OFF FOR 7 DAYS
     Route: 048
     Dates: start: 20230110
  2. CALCIUM [Concomitant]
     Active Substance: CALCIUM
  3. TYLENOL [Concomitant]
     Active Substance: ACETAMINOPHEN
  4. ANASTROZOLE [Concomitant]
     Active Substance: ANASTROZOLE
  5. ATENOLOL [Concomitant]
     Active Substance: ATENOLOL
  6. BUPROPION [Concomitant]
     Active Substance: BUPROPION
  7. CLONAZEPAM [Concomitant]
     Active Substance: CLONAZEPAM
  8. LOSARTAN [Concomitant]
     Active Substance: LOSARTAN
  9. NIFEDIPINE [Concomitant]
     Active Substance: NIFEDIPINE
  10. OMEPRAZOLE [Concomitant]
     Active Substance: DONEPEZIL HYDROCHLORIDE\OMEPRAZOLE\OMEPRAZOLE MAGNESIUM
  11. OXYCODONE [Concomitant]
     Active Substance: OXYCODONE\OXYCODONE HYDROCHLORIDE

REACTIONS (1)
  - Death [Fatal]

NARRATIVE: CASE EVENT DATE: 20240430
